FAERS Safety Report 6717633-X (Version None)
Quarter: 2010Q2

REPORT INFORMATION
  Report Type: 
  Country: None (occurrence: None)
  Receive Date: 20100505
  Receipt Date: 20100429
  Transmission Date: 20101027
  Serious: Yes (Other)
  Sender: FDA-Public Use
  Company Number: A0857276A

PATIENT

DRUGS (1)
  1. ASPIRIN + CAFFEINE + PARACETAMOL (GOODYS EXTRA STRENGTH HEADACHE ) [Suspect]
     Dosage: ORAL
     Route: 048

REACTIONS (5)
  - DRUG DEPENDENCE [None]
  - GASTRIC ULCER [None]
  - INCORRECT DOSE ADMINISTERED [None]
  - PRODUCT PACKAGING QUANTITY ISSUE [None]
  - PRODUCT QUALITY ISSUE [None]
